FAERS Safety Report 9271293 (Version 2)
Quarter: 2013Q4

REPORT INFORMATION
  Report Type: Report from Study
  Country: JP (occurrence: JP)
  Receive Date: 20130506
  Receipt Date: 20131004
  Transmission Date: 20140711
  Serious: Yes (Other)
  Sender: FDA-Public Use
  Company Number: JP-JNJFOC-20130418099

PATIENT
  Age: 66 Year
  Sex: Female
  Weight: 50 kg

DRUGS (11)
  1. SIMPONI [Suspect]
     Indication: RHEUMATOID ARTHRITIS
     Route: 058
     Dates: start: 20121031, end: 20130206
  2. METHOTREXATE [Suspect]
     Indication: RHEUMATOID ARTHRITIS
     Route: 048
     Dates: start: 20130403
  3. METHOTREXATE [Suspect]
     Indication: RHEUMATOID ARTHRITIS
     Route: 048
     Dates: start: 20121128, end: 20130206
  4. SALAZOSULFAPYRIDINE [Concomitant]
     Indication: RHEUMATOID ARTHRITIS
  5. PREDNISOLONE [Concomitant]
     Indication: RHEUMATOID ARTHRITIS
     Route: 048
  6. FOLIAMIN [Concomitant]
     Indication: PROPHYLAXIS
  7. APLACE [Concomitant]
     Indication: PROPHYLAXIS
     Route: 048
  8. TAKEPRON [Concomitant]
     Indication: PROPHYLAXIS
  9. MEVALOTIN [Concomitant]
     Indication: PROPHYLAXIS
     Route: 048
  10. ISCOTIN [Concomitant]
     Indication: PROPHYLAXIS
  11. PYDOXAL [Concomitant]
     Indication: PROPHYLAXIS

REACTIONS (1)
  - Interstitial lung disease [Recovered/Resolved]
